FAERS Safety Report 9492159 (Version 2)
Quarter: 2013Q3

REPORT INFORMATION
  Report Type: Spontaneous
  Country: US (occurrence: US)
  Receive Date: 20130830
  Receipt Date: 20130925
  Transmission Date: 20140515
  Serious: No
  Sender: FDA-Public Use
  Company Number: US-PFIZER INC-2013249760

PATIENT
  Age: 79 Year
  Sex: Female

DRUGS (5)
  1. LYRICA [Suspect]
     Dosage: UNK
  2. LYRICA [Suspect]
     Dosage: 150 MG, 2X/DAY
     Route: 048
     Dates: start: 20130913
  3. IBUPROFEN [Concomitant]
     Dosage: UNK
  4. DOXEPIN [Concomitant]
     Dosage: 50 MG, 1X/DAY
  5. FUROSEMIDE [Concomitant]
     Dosage: 20 MG, 1X/DAY

REACTIONS (3)
  - Neuralgia [Unknown]
  - Pruritus [Unknown]
  - Limb discomfort [Unknown]
